FAERS Safety Report 6299297-5 (Version None)
Quarter: 2009Q3

REPORT INFORMATION
  Report Type: 
  Country: None (occurrence: None)
  Receive Date: 20090806
  Receipt Date: 20090729
  Transmission Date: 20100115
  Serious: Yes (Other)
  Sender: FDA-Public Use
  Company Number: US-TYCO HEALTHCARE/MALLINCKRODT-T200801238

PATIENT
  Weight: 105.67 kg

DRUGS (17)
  1. OPTIMARK [Suspect]
     Indication: NUCLEAR MAGNETIC RESONANCE IMAGING BRAIN
     Dosage: UNK, UNK
     Dates: start: 20050830, end: 20050830
  2. OPTIMARK [Suspect]
     Indication: ANGIOGRAM
     Dosage: UNK
     Dates: start: 20051222, end: 20051222
  3. OPTIMARK [Suspect]
     Dosage: 20 ML, SINGLE
     Dates: start: 20060525, end: 20060525
  4. MAGNEVIST [Suspect]
     Indication: NUCLEAR MAGNETIC RESONANCE IMAGING BRAIN
     Dosage: 20 ML, SINGLE
     Dates: start: 20070502, end: 20070502
  5. ASPIRIN [Concomitant]
     Dosage: 81 MG, QD
  6. RENAGEL                            /01459901/ [Concomitant]
     Dosage: 800 MG, 5 TABS/MEAL, 2 TABS/SNACK
  7. SENSIPAR [Concomitant]
     Dosage: 60 MG, QD
  8. NEPHROVITE [Concomitant]
     Dosage: 1 TAB, QD
  9. VICODIN [Concomitant]
  10. NEXIUM [Concomitant]
     Dosage: 40 MG, ONE DAILY
  11. BENADRYL [Concomitant]
     Dosage: ONE DAILY
  12. SUDAFED                            /00070002/ [Concomitant]
     Dosage: ONE DAILY
  13. EPOETIN ALFA [Concomitant]
     Dosage: UNK
     Dates: start: 19980101, end: 20070101
  14. HEPARIN [Concomitant]
     Dosage: UNK
     Dates: start: 19980101, end: 19980101
  15. HEPARIN [Concomitant]
     Dosage: UNK
     Dates: start: 19990101, end: 19990101
  16. HEPARIN [Concomitant]
     Dosage: UNK
     Dates: start: 20000101, end: 20000101
  17. HEPARIN [Concomitant]
     Dosage: UNK
     Dates: start: 20080101, end: 20080101

REACTIONS (11)
  - ACTIVITIES OF DAILY LIVING IMPAIRED [None]
  - CHEST PAIN [None]
  - DIAPHRAGMATIC DISORDER [None]
  - DYSPHAGIA [None]
  - DYSPNOEA [None]
  - GASTRITIS [None]
  - NEPHROGENIC SYSTEMIC FIBROSIS [None]
  - OFF LABEL USE [None]
  - PERICARDITIS CONSTRICTIVE [None]
  - SLEEP APNOEA SYNDROME [None]
  - TEMPOROMANDIBULAR JOINT SYNDROME [None]
